FAERS Safety Report 5470567-3 (Version None)
Quarter: 2007Q3

REPORT INFORMATION
  Report Type: 
  Country: None (occurrence: None)
  Receive Date: 20070928
  Receipt Date: 20070921
  Transmission Date: 20080115
  Serious: Yes (Other)
  Sender: FDA-Public Use
  Company Number: PHBS2007JP15772

PATIENT
  Sex: Male

DRUGS (5)
  1. LAMISIL [Suspect]
     Indication: NAIL TINEA
     Route: 048
  2. NORVASC [Concomitant]
  3. ASPIRIN [Concomitant]
  4. LANSOPRAZOLE [Concomitant]
  5. LIPITOR [Concomitant]

REACTIONS (6)
  - ALANINE AMINOTRANSFERASE INCREASED [None]
  - ASPARTATE AMINOTRANSFERASE INCREASED [None]
  - DIPLOPIA [None]
  - HEPATIC ENZYME INCREASED [None]
  - PYREXIA [None]
  - TRANSAMINASES INCREASED [None]
